FAERS Safety Report 24867132 (Version 1)
Quarter: 2025Q1

REPORT INFORMATION
  Report Type: Spontaneous
  Country: US (occurrence: US)
  Receive Date: 20250121
  Receipt Date: 20250121
  Transmission Date: 20250409
  Serious: No
  Sender: GILEAD
  Company Number: US-GILEAD-2025-0700304

PATIENT
  Age: 71 Year
  Sex: Male

DRUGS (1)
  1. VEMLIDY [Suspect]
     Active Substance: TENOFOVIR ALAFENAMIDE FUMARATE
     Indication: Hepatitis B
     Route: 065
     Dates: start: 2024

REACTIONS (5)
  - Frustration tolerance decreased [Unknown]
  - Illness [Unknown]
  - Malabsorption [Unknown]
  - Product residue present [Unknown]
  - Intentional product use issue [Unknown]
